FAERS Safety Report 10195879 (Version 1)
Quarter: 2014Q2

REPORT INFORMATION
  Report Type: Spontaneous
  Country: US (occurrence: US)
  Receive Date: 20140527
  Receipt Date: 20140527
  Transmission Date: 20141212
  Serious: Yes (Hospitalization)
  Sender: FDA-Public Use
  Company Number: US-ASTELLAS-2014US005673

PATIENT
  Age: 71 Year
  Sex: Male

DRUGS (1)
  1. XTANDI [Suspect]
     Indication: PROSTATE CANCER
     Route: 048
     Dates: start: 20130813, end: 20140430

REACTIONS (2)
  - Hypersensitivity [Unknown]
  - Skin discolouration [Unknown]
